FAERS Safety Report 6962136-0 (Version None)
Quarter: 2010Q3

REPORT INFORMATION
  Report Type: 
  Country: None (occurrence: None)
  Receive Date: 20100901
  Receipt Date: 20100901
  Transmission Date: 20110219
  Serious: Yes (Life-Threatening, Hospitalization, Other)
  Sender: FDA-Public Use
  Company Number: None

PATIENT
  Age: 52 Year
  Sex: Female
  Weight: 73.0291 kg

DRUGS (1)
  1. ALLI [Suspect]
     Indication: WEIGHT CONTROL
     Dates: start: 20070301, end: 20100530

REACTIONS (4)
  - ARRHYTHMIA [None]
  - CHOLELITHIASIS [None]
  - HEPATIC STEATOSIS [None]
  - HEPATITIS ACUTE [None]
